FAERS Safety Report 14678134 (Version 2)
Quarter: 2018Q2

REPORT INFORMATION
  Report Type: Report from Study
  Country: None (occurrence: TW)
  Receive Date: 20180326
  Receipt Date: 20180418
  Transmission Date: 20180711
  Serious: Yes (Death)
  Sender: FDA-Public Use
  Company Number: TW-ABBVIE-18K-153-2300047-00

PATIENT
  Age: 44 Year
  Sex: Male

DRUGS (4)
  1. RIFAMPICIN [Concomitant]
     Active Substance: RIFAMPIN
     Indication: HIDRADENITIS
     Route: 048
     Dates: start: 20170718, end: 20180222
  2. KOLINCIN [Concomitant]
     Indication: HIDRADENITIS
     Route: 061
     Dates: start: 20170907
  3. CLINDAMYCIN. [Concomitant]
     Active Substance: CLINDAMYCIN
     Indication: HIDRADENITIS
     Route: 048
     Dates: start: 20170718, end: 20180222
  4. HUMIRA [Suspect]
     Active Substance: ADALIMUMAB
     Indication: HIDRADENITIS
     Route: 058
     Dates: start: 20180201, end: 20180301

REACTIONS (1)
  - Death [Fatal]

NARRATIVE: CASE EVENT DATE: 20180319
